FAERS Safety Report 16431714 (Version 1)
Quarter: 2019Q3

REPORT INFORMATION
  Report Type: Spontaneous
  Country: US (occurrence: US)
  Receive Date: 20190613
  Receipt Date: 20190613
  Transmission Date: 20191004
  Serious: Yes (Other)
  Sender: FDA-Public Use
  Company Number: None

PATIENT
  Age: 48 Year
  Sex: Female
  Weight: 75.6 kg

DRUGS (13)
  1. KLONOPIN [Concomitant]
     Active Substance: CLONAZEPAM
  2. METRONIC PAIN PUMP [Concomitant]
  3. PRILOSEC [Concomitant]
     Active Substance: OMEPRAZOLE MAGNESIUM
  4. DOMPERIDONE [Concomitant]
     Active Substance: DOMPERIDONE
  5. CALCIUM [Concomitant]
     Active Substance: CALCIUM
  6. NEURONTIN [Concomitant]
     Active Substance: GABAPENTIN
  7. TEGRETOL [Concomitant]
     Active Substance: CARBAMAZEPINE
  8. SYNTHROID [Concomitant]
     Active Substance: LEVOTHYROXINE SODIUM
  9. MOTEGRITY [Suspect]
     Active Substance: PRUCALOPRIDE SUCCINATE
     Indication: CONSTIPATION
     Dosage: ?          QUANTITY:1 CAPSULE(S);?
     Route: 048
     Dates: start: 20190601, end: 20190607
  10. HYDROCORTISONE. [Concomitant]
     Active Substance: HYDROCORTISONE
  11. COUMADIN [Concomitant]
     Active Substance: WARFARIN SODIUM
  12. IRON [Concomitant]
     Active Substance: IRON
  13. MULTI VITAMIN [Concomitant]
     Active Substance: VITAMINS

REACTIONS (3)
  - Weight increased [None]
  - Peripheral swelling [None]
  - Oedema [None]

NARRATIVE: CASE EVENT DATE: 20190603
